FAERS Safety Report 11274582 (Version 1)
Quarter: 2015Q3

REPORT INFORMATION
  Report Type: Spontaneous
  Country: US (occurrence: US)
  Receive Date: 20150715
  Receipt Date: 20150715
  Transmission Date: 20151125
  Serious: No
  Sender: FDA-Public Use
  Company Number: US-GLAXOSMITHKLINE-US2015GSK100908

PATIENT
  Sex: Female

DRUGS (1)
  1. BUPROPION HYDROCHLORIDE MODIFIED-RELEASE TABLET [Suspect]
     Active Substance: BUPROPION HYDROCHLORIDE
     Indication: PRODUCT USED FOR UNKNOWN INDICATION
     Dosage: 150 MG, U

REACTIONS (3)
  - Hot flush [Unknown]
  - Palpitations [Unknown]
  - Flushing [Unknown]
